FAERS Safety Report 8293909-2 (Version None)
Quarter: 2012Q2

REPORT INFORMATION
  Report Type: 
  Country: None (occurrence: None)
  Receive Date: 20120418
  Receipt Date: 20120416
  Transmission Date: 20120825
  Serious: No
  Sender: FDA-Public Use
  Company Number: US-PFIZER INC-2012094916

PATIENT
  Sex: Female
  Weight: 61 kg

DRUGS (8)
  1. ATENOLOL [Concomitant]
     Indication: HYPERTENSION
     Dosage: 25 MG, DAILY
  2. VICODIN [Concomitant]
     Indication: PAIN
     Dosage: UNK, AS NEEDED
  3. TRAZODONE [Concomitant]
     Indication: SLEEP DISORDER
     Dosage: UNK, DAILY
  4. VALIUM [Concomitant]
     Indication: SLEEP DISORDER
  5. VITAMIN D [Concomitant]
     Dosage: UNK
  6. ZOCOR [Concomitant]
     Indication: BLOOD CHOLESTEROL INCREASED
     Dosage: 40 MG, DAILY
  7. CHANTIX [Suspect]
     Indication: SMOKING CESSATION THERAPY
     Dosage: UNK
     Dates: start: 20080101
  8. VALIUM [Concomitant]
     Indication: ANXIETY
     Dosage: 10 MG, AS NEEDED

REACTIONS (1)
  - ABNORMAL DREAMS [None]
